FAERS Safety Report 4458847-1 (Version None)
Quarter: 2004Q3

REPORT INFORMATION
  Report Type: 
  Country: None (occurrence: None)
  Receive Date: 20040923
  Receipt Date: 20040923
  Transmission Date: 20050211
  Serious: No
  Sender: FDA-Public Use
  Company Number: None

PATIENT

DRUGS (3)
  1. CLONIDINE HCL [Suspect]
     Indication: AUTISM
     Dosage: 0.1MG 1/2 TAB PO TID
     Route: 048
     Dates: start: 20020101
  2. RISPERDAL [Concomitant]
  3. ZOLOFT [Concomitant]

REACTIONS (1)
  - DRUG INEFFECTIVE [None]
